FAERS Safety Report 14561471 (Version 5)
Quarter: 2019Q4

REPORT INFORMATION
  Report Type: Spontaneous
  Country: US (occurrence: US)
  Receive Date: 20180222
  Receipt Date: 20191001
  Transmission Date: 20200122
  Serious: No
  Sender: FDA-Public Use
  Company Number: US-PFIZER INC-2018072231

PATIENT
  Age: 9 Year
  Sex: Female
  Weight: 34 kg

DRUGS (8)
  1. GENOTROPIN [Suspect]
     Active Substance: SOMATROPIN
     Dosage: 1.8 MG, CYCLIC(: 1.8MG DAILY FOR 6 DAYS THEN 1 DAY OFF)
  2. GENOTROPIN [Suspect]
     Active Substance: SOMATROPIN
     Indication: TURNER^S SYNDROME
     Dosage: 1.5 MG, 6 DAYS/WK
  3. SERTRALINE [Concomitant]
     Active Substance: SERTRALINE HYDROCHLORIDE
     Indication: ANXIETY
     Dosage: 50 MG, 1X/DAY(ONCE A DAY BY MOUTH IN THE MORNING)
     Route: 048
  4. OXYBUTYNIN. [Concomitant]
     Active Substance: OXYBUTYNIN CHLORIDE
     Indication: BLADDER SPASM
     Dosage: 5 MG, 1X/DAY(5MG ONCE TABLET EVERY NIGHT AT BEDTIME)
  5. GENOTROPIN [Suspect]
     Active Substance: SOMATROPIN
     Dosage: 1.6 MG, 6 DAYS/WK (0.30MG/KG/WEEK)
  6. GUANFACINE. [Concomitant]
     Active Substance: GUANFACINE
     Indication: ATTENTION DEFICIT/HYPERACTIVITY DISORDER
     Dosage: 2 MG, 1X/DAY(ONCE A DAY IN THE MORNING)
  7. CLONIDINE. [Concomitant]
     Active Substance: CLONIDINE
     Indication: INSOMNIA
     Dosage: 0.2 MG, 1X/DAY(0.1MG 2 TABLET AT NIGHT BY MOUTH)
     Route: 048
  8. GENOTROPIN [Suspect]
     Active Substance: SOMATROPIN
     Dosage: 1.6 MG, 6 DAYS A WEEK
     Dates: start: 20161206

REACTIONS (6)
  - Wrong technique in device usage process [Unknown]
  - Device issue [Unknown]
  - Intentional dose omission [Unknown]
  - Blood thyroid stimulating hormone increased [Unknown]
  - Weight increased [Unknown]
  - Anti-thyroid antibody positive [Unknown]

NARRATIVE: CASE EVENT DATE: 20180209
